FAERS Safety Report 11112315 (Version 1)
Quarter: 2015Q2

REPORT INFORMATION
  Report Type: Spontaneous
  Country: US (occurrence: None)
  Receive Date: 20150512
  Receipt Date: 20150512
  Transmission Date: 20150821
  Serious: Yes (Hospitalization)
  Sender: FDA-Public Use
  Company Number: HYP201504-000050

PATIENT
  Age: 19 Month
  Sex: Male

DRUGS (2)
  1. RAVICTI [Suspect]
     Active Substance: GLYCEROL PHENYLBUTYRATE
     Indication: ARGININOSUCCINATE LYASE DEFICIENCY
     Dates: start: 201406
  2. RAVICTI [Suspect]
     Active Substance: GLYCEROL PHENYLBUTYRATE
     Indication: OFF LABEL USE
     Dates: start: 201406

REACTIONS (2)
  - Ammonia increased [None]
  - Pyrexia [None]

NARRATIVE: CASE EVENT DATE: 20150422
